FAERS Safety Report 5132706-3 (Version None)
Quarter: 2006Q4

REPORT INFORMATION
  Report Type: 
  Country: None (occurrence: None)
  Receive Date: 20061023
  Receipt Date: 20061011
  Transmission Date: 20070319
  Serious: Yes (Death, Hospitalization)
  Sender: FDA-Public Use
  Company Number: US-GLAXOSMITHKLINE-A0623578A

PATIENT
  Age: 53 Year
  Sex: Male

DRUGS (3)
  1. SEREVENT [Suspect]
     Indication: ASTHMA
     Dosage: 1PUFF TWICE PER DAY
     Route: 055
     Dates: start: 20030701, end: 20050410
  2. SEREVENT [Suspect]
     Dosage: 2PUFF TWICE PER DAY
     Route: 055
     Dates: start: 20010702, end: 20030101
  3. ALBUTEROL [Concomitant]
     Dosage: 2PUFF AS REQUIRED
     Route: 055

REACTIONS (23)
  - ACUTE MYOCARDIAL INFARCTION [None]
  - AGONAL DEATH STRUGGLE [None]
  - ANOXIC ENCEPHALOPATHY [None]
  - ASTHMA [None]
  - BONE NEOPLASM [None]
  - BRADYCARDIA [None]
  - CARDIAC ARREST [None]
  - CARDIO-RESPIRATORY ARREST [None]
  - CONVULSION [None]
  - CYANOSIS [None]
  - DRUG INEFFECTIVE [None]
  - DYSPNOEA [None]
  - HEPATIC FUNCTION ABNORMAL [None]
  - HYPOTENSION [None]
  - LOSS OF CONSCIOUSNESS [None]
  - PYREXIA [None]
  - RESPIRATORY ARREST [None]
  - SINUS BRADYCARDIA [None]
  - STAPHYLOCOCCAL INFECTION [None]
  - STATUS ASTHMATICUS [None]
  - UPPER RESPIRATORY TRACT INFECTION [None]
  - VENTRICULAR FIBRILLATION [None]
  - WHEEZING [None]
